FAERS Safety Report 5942519-8 (Version None)
Quarter: 2008Q4

REPORT INFORMATION
  Report Type: 
  Country: None (occurrence: None)
  Receive Date: 20081105
  Receipt Date: 20081029
  Transmission Date: 20090506
  Serious: Yes (Other)
  Sender: FDA-Public Use
  Company Number: US-GENENTECH-268249

PATIENT
  Sex: Female
  Weight: 102.4 kg

DRUGS (8)
  1. XOLAIR [Suspect]
     Indication: ASTHMA
     Dosage: 300 MG, Q4W
     Route: 058
     Dates: start: 20041230
  2. PROVENTIL [Concomitant]
     Indication: ASTHMA
     Dosage: UNK
     Route: 048
  3. ADVAIR DISKUS 100/50 [Concomitant]
     Indication: ASTHMA
     Dosage: 500 UNK, BID
     Route: 048
  4. THEOPHYLLINE [Concomitant]
     Indication: ASTHMA
     Dosage: 300 MG, BID
     Route: 048
  5. SINGULAIR [Concomitant]
     Indication: ASTHMA
     Dosage: 10 MG, QD
     Route: 048
  6. XOPHENEX [Concomitant]
     Indication: ASTHMA
     Dosage: UNK
     Route: 050
  7. STEROIDS (UNK INGREDIENTS) [Concomitant]
     Indication: ASTHMA
     Route: 048
  8. DIAMOX [Concomitant]
     Indication: BENIGN INTRACRANIAL HYPERTENSION
     Dosage: UNK
     Route: 048

REACTIONS (3)
  - ERYTHEMA [None]
  - EYE PRURITUS [None]
  - EYE SWELLING [None]
